FAERS Safety Report 7603191-4 (Version None)
Quarter: 2011Q3

REPORT INFORMATION
  Report Type: 
  Country: None (occurrence: None)
  Receive Date: 20110701
  Receipt Date: 20110621
  Transmission Date: 20111222
  Serious: Yes (Death)
  Sender: FDA-Public Use
  Company Number: 2011MA007944

PATIENT
  Age: 72 Year
  Sex: Female

DRUGS (2)
  1. FEVERALL [Suspect]
     Dosage: 1000 MG; TID;
     Dates: start: 20110401
  2. FLOXACILLIN SODIUM [Suspect]

REACTIONS (3)
  - METABOLIC ACIDOSIS [None]
  - DRUG INTERACTION [None]
  - SEPSIS [None]
